FAERS Safety Report 18192916 (Version 2)
Quarter: 2020Q3

REPORT INFORMATION
  Report Type: Spontaneous
  Country: FR (occurrence: FR)
  Receive Date: 20200825
  Receipt Date: 20200918
  Transmission Date: 20201103
  Serious: Yes (Life-Threatening)
  Sender: FDA-Public Use
  Company Number: FR-ROCHE-2663698

PATIENT
  Age: 43 Year
  Sex: Male
  Weight: 96 kg

DRUGS (5)
  1. TERALITHE [Suspect]
     Active Substance: LITHIUM CARBONATE
     Indication: TOXICITY TO VARIOUS AGENTS
     Dosage: LAST DOSE RECEIVED ON 20/JUL/2020
     Route: 048
     Dates: start: 20200720
  2. LOXAPAC [Suspect]
     Active Substance: LOXAPINE
     Indication: TOXICITY TO VARIOUS AGENTS
     Dosage: LAST DOSE RECEIVED ON 20/JUL/2020
     Route: 048
     Dates: start: 20200720
  3. LORMETAZEPAM [Suspect]
     Active Substance: LORMETAZEPAM
     Indication: TOXICITY TO VARIOUS AGENTS
     Dosage: LAST DOSE RECEIVED ON 20/JUL/2020
     Route: 048
     Dates: start: 20200720
  4. DIAZEPAM. [Suspect]
     Active Substance: DIAZEPAM
     Indication: TOXICITY TO VARIOUS AGENTS
     Dosage: LAST DOSE RECEIVED ON 20/JUL/2020
     Route: 048
     Dates: start: 20200720
  5. THERALENE [Suspect]
     Active Substance: TRIMEPRAZINE
     Indication: TOXICITY TO VARIOUS AGENTS
     Dosage: LAST DOSE RECEIVED ON 20/JUL/2020
     Route: 048
     Dates: start: 20200720

REACTIONS (7)
  - Neuroleptic malignant syndrome [Recovered/Resolved]
  - Disturbance in attention [Not Recovered/Not Resolved]
  - Coma [Recovered/Resolved]
  - Thrombocytopenia [Recovered/Resolved]
  - Renal failure [Recovered/Resolved]
  - Acute respiratory distress syndrome [Recovered/Resolved]
  - Cerebellar ataxia [Recovered/Resolved with Sequelae]

NARRATIVE: CASE EVENT DATE: 20200722
